FAERS Safety Report 7227340-5 (Version None)
Quarter: 2011Q1

REPORT INFORMATION
  Report Type: 
  Country: None (occurrence: None)
  Receive Date: 20110111
  Receipt Date: 20110111
  Transmission Date: 20110831
  Serious: Yes (Other)
  Sender: FDA-Public Use
  Company Number: None

PATIENT
  Age: 43 Year
  Sex: Female
  Weight: 43.0917 kg

DRUGS (1)
  1. LEVAQUIN [Suspect]
     Indication: CYSTITIS
     Dosage: 500MG ONCE A DAILY PO
     Route: 048
     Dates: start: 20110107, end: 20110108

REACTIONS (16)
  - PARANOIA [None]
  - HEADACHE [None]
  - DYSLEXIA [None]
  - HALLUCINATION, VISUAL [None]
  - FOOD CRAVING [None]
  - VISION BLURRED [None]
  - FATIGUE [None]
  - BACK PAIN [None]
  - SALT CRAVING [None]
  - DIZZINESS [None]
  - MUSCULAR WEAKNESS [None]
  - TENDON PAIN [None]
  - CONFUSIONAL STATE [None]
  - MOOD ALTERED [None]
  - GASTRIC DISORDER [None]
  - THINKING ABNORMAL [None]
